FAERS Safety Report 13039814 (Version 1)
Quarter: 2016Q4

REPORT INFORMATION
  Report Type: Spontaneous
  Country: US (occurrence: US)
  Receive Date: 20161219
  Receipt Date: 20161219
  Transmission Date: 20170207
  Serious: Yes (Hospitalization)
  Sender: FDA-Public Use
  Company Number: US-009507513-1612USA006844

PATIENT
  Age: 75 Year
  Sex: Female

DRUGS (1)
  1. COZAAR [Suspect]
     Active Substance: LOSARTAN POTASSIUM
     Dosage: UNK, SHE TOOK 6 PILLS
     Route: 048

REACTIONS (7)
  - Swollen tongue [Unknown]
  - Acne [Unknown]
  - Urticaria [Unknown]
  - Dyspnoea [Unknown]
  - Lip swelling [Unknown]
  - Throat tightness [Unknown]
  - Head titubation [Unknown]
